FAERS Safety Report 18177413 (Version 2)
Quarter: 2022Q1

REPORT INFORMATION
  Report Type: Report from Study
  Country: NL (occurrence: NL)
  Receive Date: 20200821
  Receipt Date: 20220101
  Transmission Date: 20220423
  Serious: No
  Sender: FDA-Public Use
  Company Number: NL-AUROBINDO-AUR-APL-2020-039305

PATIENT
  Age: 5 Year
  Sex: Female

DRUGS (4)
  1. AMOXICILLIN [Suspect]
     Active Substance: AMOXICILLIN
     Indication: Otitis externa
     Dosage: 4 MILLILITER, 3 TIMES A DAY (250MG/5ML)
     Route: 065
  2. AMOXICILLIN [Suspect]
     Active Substance: AMOXICILLIN
     Indication: Pyrexia
  3. METHYLPHENIDATE [Suspect]
     Active Substance: METHYLPHENIDATE
     Indication: Attention deficit hyperactivity disorder
     Dosage: 5 MILLIGRAM, TWO TIMES A DAY
     Route: 065
  4. METHYLPHENIDATE [Suspect]
     Active Substance: METHYLPHENIDATE
     Dosage: 10 MILLIGRAM, TWO TIMES A DAY
     Route: 065

REACTIONS (4)
  - Hyperhidrosis [Recovered/Resolved]
  - Crying [Recovered/Resolved]
  - Confusional state [Recovered/Resolved]
  - Disorientation [Recovered/Resolved]
